FAERS Safety Report 14761212 (Version 1)
Quarter: 2018Q2

REPORT INFORMATION
  Report Type: Report from Study
  Country: US (occurrence: US)
  Receive Date: 20180415
  Receipt Date: 20180415
  Transmission Date: 20180711
  Serious: Yes (Other)
  Sender: FDA-Public Use
  Company Number: US-TEVA-2018-US-881001

PATIENT
  Sex: Male

DRUGS (1)
  1. AUSTEDO [Suspect]
     Active Substance: DEUTETRABENAZINE
     Indication: HUNTINGTON^S DISEASE
     Dosage: 36 MILLIGRAM DAILY;
     Route: 065

REACTIONS (4)
  - Huntington^s disease [Unknown]
  - Loss of personal independence in daily activities [Unknown]
  - Movement disorder [Unknown]
  - Cognitive disorder [Unknown]
